FAERS Safety Report 21508698 (Version 1)
Quarter: 2022Q4

REPORT INFORMATION
  Report Type: Spontaneous
  Country: CN (occurrence: CN)
  Receive Date: 20221026
  Receipt Date: 20221026
  Transmission Date: 20230112
  Serious: Yes (Disabling, Other)
  Sender: FDA-Public Use
  Company Number: CN-PFIZER INC-PV202200088178

PATIENT
  Age: 74 Year
  Sex: Male
  Weight: 72 kg

DRUGS (17)
  1. VFEND [Suspect]
     Active Substance: VORICONAZOLE
     Indication: Intracranial infection
     Dosage: 200 MG, 2X/DAY
     Route: 041
     Dates: start: 20221010, end: 20221015
  2. CEFOPERAZONE SODIUM\SULBACTAM SODIUM [Concomitant]
     Active Substance: CEFOPERAZONE SODIUM\SULBACTAM SODIUM
     Indication: Intracranial infection
     Dosage: 3 G, 3X/DAY
     Route: 041
     Dates: start: 20221003, end: 20221013
  3. MIDAZOLAM [Concomitant]
     Active Substance: MIDAZOLAM
     Indication: Sedation
     Dosage: 50 MG, 1X/DAY
     Dates: start: 20221003, end: 20221011
  4. DE BA JIN [Concomitant]
     Indication: Epilepsy
     Dosage: 0.4 G, 2X/DAY
     Dates: start: 20221003, end: 20221010
  5. LUO SAI KE [Concomitant]
     Indication: Therapeutic procedure
     Dosage: 40 MG, 2X/DAY
     Route: 041
     Dates: start: 20221003, end: 20221011
  6. METHYLPREDNISOLONE SODIUM SUCCINATE [Concomitant]
     Active Substance: METHYLPREDNISOLONE SODIUM SUCCINATE
     Indication: Infection
     Dosage: 40 MG, 1X/DAY
     Route: 041
     Dates: start: 20221003, end: 20221011
  7. REMIFENTANIL HYDROCHLORIDE [Concomitant]
     Active Substance: REMIFENTANIL HYDROCHLORIDE
     Indication: Therapeutic procedure
     Dosage: 2 MG, 1X/DAY
     Dates: start: 20221005, end: 20221016
  8. ACYCLOVIR [Concomitant]
     Active Substance: ACYCLOVIR
     Indication: Intracranial infection
     Dosage: 0.625 G, 3X/DAY
     Route: 041
     Dates: start: 20221006, end: 20221011
  9. DOXYCYCLINE HYCLATE [Concomitant]
     Active Substance: DOXYCYCLINE HYCLATE
     Indication: Intracranial infection
     Dosage: 0.1 G, 2X/DAY
     Dates: start: 20221003, end: 20221008
  10. SODIUM CHLORIDE [Concomitant]
     Active Substance: SODIUM CHLORIDE
     Indication: Vehicle solution use
     Dosage: 100 ML, 2X/DAY
     Route: 041
     Dates: start: 20221003, end: 20221013
  11. SODIUM CHLORIDE [Concomitant]
     Active Substance: SODIUM CHLORIDE
     Dosage: 100 ML, 3X/DAY
     Route: 041
     Dates: start: 20221006, end: 20221011
  12. SODIUM CHLORIDE [Concomitant]
     Active Substance: SODIUM CHLORIDE
     Dosage: 100 ML, 2X/DAY
     Route: 041
     Dates: start: 20221010, end: 20221015
  13. SODIUM CHLORIDE [Concomitant]
     Active Substance: SODIUM CHLORIDE
     Indication: Vehicle solution use
     Dosage: 50 ML, 2X/DAY
     Dates: start: 20221003, end: 20221010
  14. SODIUM CHLORIDE [Concomitant]
     Active Substance: SODIUM CHLORIDE
     Dosage: 50 ML, 1X/DAY
     Dates: start: 20221003, end: 20221011
  15. SODIUM CHLORIDE [Concomitant]
     Active Substance: SODIUM CHLORIDE
     Dosage: 50 ML, 1X/DAY
     Route: 041
     Dates: start: 20221003, end: 20221011
  16. SODIUM CHLORIDE [Concomitant]
     Active Substance: SODIUM CHLORIDE
     Dosage: 50 ML, 2X/DAY
     Route: 041
     Dates: start: 20221003, end: 20221011
  17. SODIUM CHLORIDE [Concomitant]
     Active Substance: SODIUM CHLORIDE
     Dosage: 50 ML, 1X/DAY
     Dates: start: 20221005, end: 20221016

REACTIONS (3)
  - Blood bilirubin increased [Recovering/Resolving]
  - Hepatic enzyme increased [Recovering/Resolving]
  - Off label use [Unknown]

NARRATIVE: CASE EVENT DATE: 20221010
